FAERS Safety Report 4466200-X (Version None)
Quarter: 2004Q4

REPORT INFORMATION
  Report Type: 
  Country: None (occurrence: None)
  Receive Date: 20041005
  Receipt Date: 20040923
  Transmission Date: 20050328
  Serious: Yes (Death)
  Sender: FDA-Public Use
  Company Number: SE-JNJFOC-20031000863

PATIENT
  Age: 74 Year
  Sex: Male

DRUGS (6)
  1. SPORANOX [Suspect]
     Indication: ONYCHOMYCOSIS
     Route: 065
  2. SELOKEN [Concomitant]
  3. FUROSEMIDE [Concomitant]
  4. SUSCARD [Concomitant]
  5. IMDUR [Concomitant]
  6. ASPIRIN [Concomitant]

REACTIONS (8)
  - BREAST PAIN [None]
  - CARDIAC FAILURE [None]
  - CHILLS [None]
  - CONFUSIONAL STATE [None]
  - HALLUCINATION [None]
  - HEPATIC NEOPLASM MALIGNANT [None]
  - INTRA-ABDOMINAL HAEMORRHAGE [None]
  - PYREXIA [None]
